FAERS Safety Report 16636557 (Version 1)
Quarter: 2019Q3

REPORT INFORMATION
  Report Type: Spontaneous
  Country: CA (occurrence: CA)
  Receive Date: 20190726
  Receipt Date: 20190726
  Transmission Date: 20191004
  Serious: Yes (Other)
  Sender: FDA-Public Use
  Company Number: CA-009507513-1907CAN014720

PATIENT
  Age: 31 Year
  Sex: Female

DRUGS (8)
  1. KETOTIFEN FUMARATE. [Suspect]
     Active Substance: KETOTIFEN FUMARATE
     Indication: ANAPHYLACTIC REACTION
     Dosage: 4.0 MG, BID
     Route: 065
  2. SINGULAIR [Suspect]
     Active Substance: MONTELUKAST SODIUM
     Indication: ANAPHYLACTIC REACTION
     Dosage: 10 MG
     Route: 065
  3. CETIRIZINE HYDROCHLORIDE. [Suspect]
     Active Substance: CETIRIZINE HYDROCHLORIDE
     Indication: ANAPHYLACTIC REACTION
     Dosage: 20.0 MG
     Route: 065
  4. DESLORATADINE. [Suspect]
     Active Substance: DESLORATADINE
     Indication: ANAPHYLACTIC REACTION
     Dosage: 5 MG
     Route: 065
  5. CROMOLYN SODIUM. [Suspect]
     Active Substance: CROMOLYN SODIUM
     Indication: ANAPHYLACTIC REACTION
     Dosage: 200 MG, TID
     Route: 065
  6. APO RANITIDINE [Suspect]
     Active Substance: RANITIDINE
     Indication: ANAPHYLACTIC REACTION
     Dosage: 150.0 MG, BID
     Route: 065
  7. PLAQUENIL [Suspect]
     Active Substance: HYDROXYCHLOROQUINE SULFATE
     Indication: ANAPHYLACTIC REACTION
     Dosage: 200 MG
     Route: 065
  8. APO PREDNISONE [Suspect]
     Active Substance: PREDNISONE
     Indication: ANAPHYLACTIC REACTION
     Dosage: UNK
     Route: 065

REACTIONS (2)
  - Off label use [Unknown]
  - Drug ineffective [Unknown]
